FAERS Safety Report 9610600 (Version 1)
Quarter: 2013Q4

REPORT INFORMATION
  Report Type: Spontaneous
  Country: IT (occurrence: IT)
  Receive Date: 20131009
  Receipt Date: 20131009
  Transmission Date: 20140711
  Serious: Yes (Hospitalization)
  Sender: FDA-Public Use
  Company Number: PHHY2013IT112622

PATIENT
  Age: 64 Year
  Sex: Male

DRUGS (5)
  1. TEGRETOL [Suspect]
     Indication: EPILEPSY
     Dosage: 2 DF, DAILY
     Route: 048
     Dates: start: 20130801, end: 20130929
  2. TEGRETOL [Suspect]
     Dosage: 200 MG, BID
  3. MICARDIS PLUS [Concomitant]
     Dosage: 1 DF, UNK
     Route: 048
  4. CARDIRENE [Concomitant]
     Dosage: 1 DF, UNK
     Route: 048
  5. KEPPRA [Concomitant]
     Dosage: 3 DF, UNK
     Route: 048

REACTIONS (3)
  - Apraxia [Recovering/Resolving]
  - Headache [Recovering/Resolving]
  - Hyponatraemia [Recovering/Resolving]
